FAERS Safety Report 19906728 (Version 1)
Quarter: 2021Q4

REPORT INFORMATION
  Report Type: Report from Study
  Country: AU (occurrence: AU)
  Receive Date: 20211001
  Receipt Date: 20211001
  Transmission Date: 20220303
  Serious: Yes (Hospitalization)
  Sender: FDA-Public Use
  Company Number: AU-JNJFOC-20210942561

PATIENT
  Age: 69 Year
  Sex: Male

DRUGS (7)
  1. BORTEZOMIB [Suspect]
     Active Substance: BORTEZOMIB
     Indication: Plasma cell myeloma
     Dosage: 2.77 MILLIGRAM
     Route: 058
     Dates: start: 20201123
  2. DEXAMETHASONE [Suspect]
     Active Substance: DEXAMETHASONE
     Indication: Plasma cell myeloma
     Dosage: 20 MILLIGRAM
     Route: 065
     Dates: start: 20201123
  3. DARATUMUMAB [Suspect]
     Active Substance: DARATUMUMAB
     Indication: Plasma cell myeloma
     Dosage: UNK
     Route: 042
     Dates: start: 20201123
  4. CALCIUM CARBONATE [Concomitant]
     Active Substance: CALCIUM CARBONATE
     Indication: Plasma cell myeloma
     Dosage: 2400 MILLIGRAM
     Route: 048
     Dates: start: 20200316, end: 20201231
  5. ENOXAPARIN SODIUM [Concomitant]
     Active Substance: ENOXAPARIN SODIUM
     Indication: Anticoagulant therapy
     Dosage: 100 MILLIGRAM
     Route: 058
     Dates: start: 20201229, end: 20201231
  6. DOCUSATE SODIUM\SENNOSIDES A AND B [Concomitant]
     Active Substance: DOCUSATE SODIUM\SENNOSIDES A AND B
     Indication: Antifungal prophylaxis
     Dosage: UNK
     Route: 048
     Dates: start: 20201123, end: 20201231
  7. VALACYCLOVIR HYDROCHLORIDE [Concomitant]
     Active Substance: VALACYCLOVIR HYDROCHLORIDE
     Indication: Herpes zoster
     Dosage: 2000 MILLIGRAM
     Route: 048
     Dates: start: 20200316

REACTIONS (1)
  - Orthostatic hypertension [Not Recovered/Not Resolved]

NARRATIVE: CASE EVENT DATE: 20201227
